FAERS Safety Report 6116598-1 (Version None)
Quarter: 2009Q1

REPORT INFORMATION
  Report Type: 
  Country: None (occurrence: None)
  Receive Date: 20090314
  Receipt Date: 20081218
  Transmission Date: 20090719
  Serious: No
  Sender: FDA-Public Use
  Company Number: US-ABBOTT-08P-163-0493414-00

PATIENT
  Sex: Male
  Weight: 81.72 kg

DRUGS (3)
  1. HUMIRA [Suspect]
     Indication: CROHN'S DISEASE
     Route: 058
     Dates: start: 20081126, end: 20081126
  2. HUMIRA [Suspect]
     Route: 058
     Dates: start: 20081211, end: 20081211
  3. ACIPHEX [Concomitant]
     Indication: GASTROOESOPHAGEAL REFLUX DISEASE
     Route: 048

REACTIONS (9)
  - DEPRESSION [None]
  - DYSPNOEA [None]
  - FATIGUE [None]
  - HEADACHE [None]
  - INJECTION SITE HAEMATOMA [None]
  - INJECTION SITE RASH [None]
  - IRRITABILITY [None]
  - NAUSEA [None]
  - PRURITUS [None]
